FAERS Safety Report 17885146 (Version 3)
Quarter: 2025Q1

REPORT INFORMATION
  Report Type: Other
  Country: CA (occurrence: CA)
  Receive Date: 20200611
  Receipt Date: 20250122
  Transmission Date: 20250408
  Serious: Yes (Death)
  Sender: GLENMARK
  Company Number: CA-GLENMARK PHARMACEUTICALS-2020GMK048092

PATIENT

DRUGS (23)
  1. EZETIMIBE [Suspect]
     Active Substance: EZETIMIBE
     Indication: Type IIa hyperlipidaemia
     Route: 065
  2. ATORVASTATIN [Suspect]
     Active Substance: ATORVASTATIN
     Indication: Type IIa hyperlipidaemia
     Route: 065
  3. EVOLOCUMAB [Suspect]
     Active Substance: EVOLOCUMAB
     Indication: Type IIa hyperlipidaemia
     Route: 065
  4. IMPLITAPIDE [Suspect]
     Active Substance: IMPLITAPIDE
     Indication: Type IIa hyperlipidaemia
     Route: 065
  5. LOMITAPIDE [Suspect]
     Active Substance: LOMITAPIDE
     Indication: Type IIa hyperlipidaemia
     Route: 065
  6. LOMITAPIDE [Suspect]
     Active Substance: LOMITAPIDE
     Route: 048
  7. LOVASTATIN [Suspect]
     Active Substance: LOVASTATIN
     Indication: Type IIa hyperlipidaemia
     Route: 065
  8. PROBUCOL [Suspect]
     Active Substance: PROBUCOL
     Indication: Type IIa hyperlipidaemia
     Route: 065
  9. ROSUVASTATIN [Suspect]
     Active Substance: ROSUVASTATIN
     Indication: Type IIa hyperlipidaemia
     Route: 065
  10. SIMVASTATIN [Suspect]
     Active Substance: SIMVASTATIN
     Indication: Type IIa hyperlipidaemia
     Route: 065
  11. ATORVASTATIN CALCIUM [Suspect]
     Active Substance: ATORVASTATIN CALCIUM
     Indication: Type IIa hyperlipidaemia
     Route: 065
  12. ROSUVASTATIN CALCIUM [Suspect]
     Active Substance: ROSUVASTATIN CALCIUM
     Indication: Type IIa hyperlipidaemia
     Route: 048
  13. JUXTAPID [Suspect]
     Active Substance: LOMITAPIDE MESYLATE
     Indication: Type IIa hyperlipidaemia
     Route: 048
  14. REPATHA [Suspect]
     Active Substance: EVOLOCUMAB
     Indication: Type IIa hyperlipidaemia
     Route: 065
  15. ZOCOR [Suspect]
     Active Substance: SIMVASTATIN
     Indication: Type IIa hyperlipidaemia
     Route: 065
  16. LOMITAPIDE MESYLATE [Suspect]
     Active Substance: LOMITAPIDE MESYLATE
     Indication: Type IIa hyperlipidaemia
     Route: 065
  17. LOMITAPIDE MESYLATE [Suspect]
     Active Substance: LOMITAPIDE MESYLATE
     Route: 065
  18. LOMITAPIDE MESYLATE [Suspect]
     Active Substance: LOMITAPIDE MESYLATE
     Route: 048
  19. ATORVASTATIN CALCIUM [Suspect]
     Active Substance: ATORVASTATIN CALCIUM
     Indication: Type IIa hyperlipidaemia
     Route: 065
  20. ROSUVASTATIN [Suspect]
     Active Substance: ROSUVASTATIN
     Indication: Type IIa hyperlipidaemia
     Route: 048
  21. EZETIMIBE [Suspect]
     Active Substance: EZETIMIBE
     Indication: Type IIa hyperlipidaemia
     Route: 065
  22. LOVASTATIN [Suspect]
     Active Substance: LOVASTATIN
     Indication: Type IIa hyperlipidaemia
     Route: 065
  23. ZOCOR [Suspect]
     Active Substance: SIMVASTATIN
     Indication: Type IIa hyperlipidaemia
     Route: 065

REACTIONS (2)
  - Disease progression [Fatal]
  - Type IIa hyperlipidaemia [Fatal]
